FAERS Safety Report 7515451-6 (Version None)
Quarter: 2011Q2

REPORT INFORMATION
  Report Type: 
  Country: None (occurrence: None)
  Receive Date: 20110526
  Receipt Date: 20110526
  Transmission Date: 20111010
  Serious: Yes (Other)
  Sender: FDA-Public Use
  Company Number: None

PATIENT
  Age: 52 Year
  Sex: Female
  Weight: 108 kg

DRUGS (3)
  1. MESALAMINE [Suspect]
  2. MESALAMINE [Suspect]
     Indication: CROHN'S DISEASE
     Dosage: 1500 MG EVERY DAY PO
     Route: 048
     Dates: start: 20110119, end: 20110511
  3. MESALAMINE [Suspect]

REACTIONS (4)
  - NAUSEA [None]
  - PRODUCT FORMULATION ISSUE [None]
  - DIARRHOEA [None]
  - VOMITING [None]
